FAERS Safety Report 9779465 (Version 1)
Quarter: 2013Q4

REPORT INFORMATION
  Report Type: Spontaneous
  Country: GB (occurrence: GB)
  Receive Date: 20131223
  Receipt Date: 20131223
  Transmission Date: 20140711
  Serious: Yes (Other)
  Sender: FDA-Public Use
  Company Number: GB-TEVA-451168ISR

PATIENT
  Age: 73 Year
  Sex: Male

DRUGS (1)
  1. TAMSULOSIN [Suspect]
     Indication: LOWER URINARY TRACT SYMPTOMS

REACTIONS (5)
  - Fall [Unknown]
  - Injury [Unknown]
  - Dizziness [Unknown]
  - Balance disorder [Unknown]
  - Hypotension [Unknown]
